FAERS Safety Report 16815034 (Version 2)
Quarter: 2019Q3

REPORT INFORMATION
  Report Type: Report from Study
  Country: HU (occurrence: HU)
  Receive Date: 20190917
  Receipt Date: 20190925
  Transmission Date: 20191005
  Serious: Yes (Other)
  Sender: FDA-Public Use
  Company Number: PHHY2019HU214120

PATIENT
  Age: 65 Year
  Sex: Male
  Weight: 89 kg

DRUGS (2)
  1. PANANGIN FORTE [Concomitant]
     Indication: PRODUCT USED FOR UNKNOWN INDICATION
     Dosage: 1 DF, QD
     Route: 065
  2. SANDOSTATIN LAR DEPOT [Suspect]
     Active Substance: OCTREOTIDE ACETATE
     Indication: NEUROENDOCRINE TUMOUR
     Dosage: 20 MG, QMO
     Route: 030
     Dates: start: 20180128, end: 20190814

REACTIONS (10)
  - Hepatomegaly [Not Recovered/Not Resolved]
  - Neuroendocrine tumour [Not Recovered/Not Resolved]
  - Metastases to pancreas [Unknown]
  - Type 2 diabetes mellitus [Unknown]
  - Abdominal distension [Not Recovered/Not Resolved]
  - Ascites [Unknown]
  - Cachexia [Not Recovered/Not Resolved]
  - Malignant neoplasm progression [Not Recovered/Not Resolved]
  - Hypertension [Unknown]
  - Lymphadenopathy [Unknown]

NARRATIVE: CASE EVENT DATE: 20190717
